FAERS Safety Report 4895204-8 (Version None)
Quarter: 2006Q1

REPORT INFORMATION
  Report Type: 
  Country: None (occurrence: None)
  Receive Date: 20060125
  Receipt Date: 20060125
  Transmission Date: 20060701
  Serious: Yes (Other)
  Sender: FDA-Public Use
  Company Number: 2005BH001162

PATIENT
  Age: 37 Year
  Sex: Female

DRUGS (1)
  1. LACTATED RINGER'S [Suspect]
     Indication: CAESAREAN SECTION
     Dosage: 125 ML; ONCE; IV
     Route: 042
     Dates: start: 20050725, end: 20050725

REACTIONS (1)
  - HYPERSENSITIVITY [None]
